FAERS Safety Report 8836577 (Version 1)
Quarter: 2012Q4

REPORT INFORMATION
  Report Type: Spontaneous
  Country: DK (occurrence: None)
  Receive Date: 20121009
  Receipt Date: 20121009
  Transmission Date: 20130627
  Serious: Yes (Other)
  Sender: FDA-Public Use
  Company Number: 2012033469

PATIENT
  Age: 67 Year
  Sex: Male

DRUGS (2)
  1. IMMUNOGLOBULIN G HUMAN [Suspect]
     Indication: BLOOD DISORDER
  2. VERMOX [Suspect]
     Indication: WORMS
     Route: 048

REACTIONS (4)
  - Neutrophil count decreased [None]
  - Pharyngeal erythema [None]
  - Influenza like illness [None]
  - Off label use [None]
